FAERS Safety Report 9369311 (Version 3)
Quarter: 2013Q3

REPORT INFORMATION
  Report Type: Spontaneous
  Country: FI (occurrence: FI)
  Receive Date: 20130626
  Receipt Date: 20130730
  Transmission Date: 20140515
  Serious: Yes (Hospitalization, Other)
  Sender: FDA-Public Use
  Company Number: FI-ROCHE-1237713

PATIENT
  Age: 76 Year
  Sex: Male

DRUGS (2)
  1. AVASTIN [Suspect]
     Indication: MACULAR DEGENERATION
     Route: 050
     Dates: start: 20121027, end: 20130605
  2. AVASTIN [Suspect]
     Indication: OFF LABEL USE

REACTIONS (3)
  - Vitreous opacities [Unknown]
  - Toxicity to various agents [Unknown]
  - Suspected transmission of an infectious agent via product [Unknown]
